FAERS Safety Report 19180618 (Version 1)
Quarter: 2021Q2

REPORT INFORMATION
  Report Type: Spontaneous
  Country: DE (occurrence: DE)
  Receive Date: 20210426
  Receipt Date: 20210426
  Transmission Date: 20210717
  Serious: Yes (Other)
  Sender: FDA-Public Use
  Company Number: NVSC2021DE084455

PATIENT
  Age: 90 Year
  Sex: Male

DRUGS (7)
  1. TORASEMID ? 1 A PHARMA [Suspect]
     Active Substance: TORSEMIDE
     Indication: URINE OUTPUT
     Dosage: 2.5 MG, QD(WITH SOME WATER IN DIFFERENT INTERVALS BETWEEN HALF AN HOUR AND A WHOLE HOUR SP)
     Route: 048
  2. ALLOPURINOL?RATIOPHARM [Suspect]
     Active Substance: ALLOPURINOL
     Indication: GOUT
     Dosage: 300 MG, QD( IN THE MORNING AT BREAKFAST)
     Route: 048
  3. DIGITOXIN ^AWD^ [Concomitant]
     Active Substance: DIGITOXIN
     Indication: PRODUCT USED FOR UNKNOWN INDICATION
     Dosage: 0.07 MG, QD (.07 MILLIGRAM DAILY)
     Route: 048
     Dates: start: 20210315
  4. RAMIPRIL 1A PHARMA [Suspect]
     Active Substance: RAMIPRIL
     Indication: HYPERTENSION
     Dosage: 2.5 MG, QD(WITH SOME WATER IN DIFFERENT INTERVALS BETWEEN HALF AN HOUR AND A WHOLE HOUR SP)
     Route: 048
  5. BISOPROLOL 5? 1A PHARMA [Suspect]
     Active Substance: BISOPROLOL
     Indication: HYPERTENSION
     Dosage: 5 MG, QD (WITH SOME WATER IN DIFFERENT INTERVALS BETWEEN HALF AN HOUR AND A WHOLE HOUR SPRE)
     Route: 048
  6. FOLSAN [Suspect]
     Active Substance: FOLIC ACID
     Indication: GOUT
     Dosage: 5 MG, QD (ABOUT 20 MINUTES AFTER ALLOPURINOL )
     Route: 048
  7. XARELTO [Suspect]
     Active Substance: RIVAROXABAN
     Indication: PROPHYLAXIS
     Dosage: 15 MG, QD(IN THE MORNING AT BREAKFAST, ABOUT 20 MINUTES AFTER FOLSAN)
     Route: 048

REACTIONS (2)
  - Malaise [Not Recovered/Not Resolved]
  - Arrhythmia [Not Recovered/Not Resolved]
